FAERS Safety Report 20726039 (Version 2)
Quarter: 2022Q2

REPORT INFORMATION
  Report Type: Spontaneous
  Country: US (occurrence: US)
  Receive Date: 20220419
  Receipt Date: 20220604
  Transmission Date: 20220720
  Serious: No
  Sender: FDA-Public Use
  Company Number: US-SA-SAC20220413001946

PATIENT
  Age: 1 Year
  Sex: Male

DRUGS (2)
  1. ALPROLIX [Suspect]
     Active Substance: EFTRENONACOG ALFA
     Dosage: 1072 IU
     Route: 042
  2. ALPROLIX [Suspect]
     Active Substance: EFTRENONACOG ALFA
     Dosage: 1072 IU
     Route: 042

REACTIONS (4)
  - Contusion [Unknown]
  - Skin discolouration [Unknown]
  - Ecchymosis [Unknown]
  - Head injury [Unknown]
